FAERS Safety Report 25437996 (Version 1)
Quarter: 2025Q2

REPORT INFORMATION
  Report Type: Spontaneous
  Country: US (occurrence: US)
  Receive Date: 20250616
  Receipt Date: 20250616
  Transmission Date: 20250717
  Serious: No
  Sender: ZYDUS PHARM
  Company Number: US-CADILA HEALTHCARE LIMITED-US-ZYDUS-124535

PATIENT

DRUGS (3)
  1. CARVEDILOL [Suspect]
     Active Substance: CARVEDILOL
     Indication: Cardiomyopathy
     Route: 048
  2. CARVEDILOL [Suspect]
     Active Substance: CARVEDILOL
     Route: 048
     Dates: end: 202505
  3. CARVEDILOL [Suspect]
     Active Substance: CARVEDILOL
     Route: 048
     Dates: start: 202505

REACTIONS (2)
  - Abdominal pain upper [Not Recovered/Not Resolved]
  - Rebound effect [Unknown]
